FAERS Safety Report 7256170-3 (Version None)
Quarter: 2011Q1

REPORT INFORMATION
  Report Type: 
  Country: None (occurrence: None)
  Receive Date: 20110129
  Receipt Date: 20100628
  Transmission Date: 20110831
  Serious: No
  Sender: FDA-Public Use
  Company Number: US-ABBOTT-10P-163-0648917-00

PATIENT
  Sex: Female

DRUGS (4)
  1. VERAPAMIL [Concomitant]
     Indication: HYPERTENSION
  2. TRIAMTERENE [Concomitant]
     Indication: HYPERTENSION
     Dosage: DAILY
  3. HUMIRA [Suspect]
     Indication: RHEUMATOID ARTHRITIS
     Route: 058
     Dates: start: 20080101
  4. TRAMADOL HCL [Suspect]
     Indication: ARTHRALGIA
     Dates: start: 20100501

REACTIONS (8)
  - ARTHRALGIA [None]
  - ABNORMAL DREAMS [None]
  - WEIGHT DECREASED [None]
  - ALOPECIA [None]
  - SKIN DISCOLOURATION [None]
  - STRESS [None]
  - MELANOCYTIC NAEVUS [None]
  - RASH MACULAR [None]
